FAERS Safety Report 4309574-2 (Version None)
Quarter: 2004Q1

REPORT INFORMATION
  Report Type: 
  Country: None (occurrence: None)
  Receive Date: 20040301
  Receipt Date: 20040217
  Transmission Date: 20041129
  Serious: Yes (Hospitalization)
  Sender: FDA-Public Use
  Company Number: 2004199835AU

PATIENT
  Age: 18 Year
  Sex: Female

DRUGS (11)
  1. CYCLOPHOSPHAMIDE [Suspect]
     Indication: GLOMERULONEPHRITIS
     Dosage: 1 G, IV
     Route: 042
  2. DELTA-CORTEF [Suspect]
     Indication: GLOMERULONEPHRITIS
     Dosage: 60 MG, QD
  3. OMEPRAZOLE [Concomitant]
  4. FUROSEMIDE [Concomitant]
  5. PRAZOSIN GITS [Concomitant]
  6. GLICLAZIDE (GLICLAZIDE) [Concomitant]
  7. RAMIPRIL [Concomitant]
  8. HYDROCHLOROTHIAZIDE [Concomitant]
  9. AMLODIPINE [Concomitant]
  10. MAGNESIUM ASPARTATE (MAGNESIUM ASPARTATE) [Concomitant]
  11. ERYTHROPOIETIN (ERYTHROPOIETIN) [Concomitant]

REACTIONS (14)
  - ANURIA [None]
  - BLOOD CREATINE PHOSPHOKINASE INCREASED [None]
  - ELECTROCARDIOGRAM ST SEGMENT ELEVATION [None]
  - FEBRILE NEUTROPENIA [None]
  - HAEMODIALYSIS [None]
  - HYPOVOLAEMIC SHOCK [None]
  - MYOCARDITIS [None]
  - PULMONARY HAEMORRHAGE [None]
  - RESPIRATORY FAILURE [None]
  - SEPSIS [None]
  - SEPTIC SHOCK [None]
  - STRONGYLOIDIASIS [None]
  - SUPERINFECTION [None]
  - TROPONIN INCREASED [None]
